FAERS Safety Report 9913246 (Version 1)
Quarter: 2014Q1

REPORT INFORMATION
  Report Type: Spontaneous
  Country: US (occurrence: None)
  Receive Date: 20140219
  Receipt Date: 20140219
  Transmission Date: 20141002
  Serious: Yes (Other)
  Sender: FDA-Public Use
  Company Number: None

PATIENT
  Age: 29 Year
  Sex: Female
  Weight: 156.95 kg

DRUGS (1)
  1. NUVA RING [Suspect]
     Dates: start: 201308, end: 20140131

REACTIONS (1)
  - Deep vein thrombosis [None]
